FAERS Safety Report 6594526-2 (Version None)
Quarter: 2010Q1

REPORT INFORMATION
  Report Type: 
  Country: None (occurrence: None)
  Receive Date: 20100222
  Receipt Date: 20100209
  Transmission Date: 20100710
  Serious: Yes (Other)
  Sender: FDA-Public Use
  Company Number: PHHY2010JP07158

PATIENT
  Age: 38 Year
  Sex: Male

DRUGS (1)
  1. INTERFERON BETA-1B [Suspect]
     Indication: MULTIPLE SCLEROSIS
     Dosage: UNK
     Route: 058
     Dates: start: 20040401

REACTIONS (12)
  - FAT NECROSIS [None]
  - INJECTION SITE ERYTHEMA [None]
  - INJECTION SITE RASH [None]
  - LYMPHOCYTIC INFILTRATION [None]
  - PAIN OF SKIN [None]
  - PANNICULITIS LOBULAR [None]
  - SCAR [None]
  - SKIN HYPERPIGMENTATION [None]
  - SKIN NECROSIS [None]
  - SKIN PLAQUE [None]
  - THROMBOSIS [None]
  - VASCULAR SKIN DISORDER [None]
